FAERS Safety Report 21620301 (Version 2)
Quarter: 2022Q4

REPORT INFORMATION
  Report Type: Spontaneous
  Country: US (occurrence: US)
  Receive Date: 20221121
  Receipt Date: 20221123
  Transmission Date: 20230113
  Serious: No
  Sender: FDA-Public Use
  Company Number: US-002147023-NVSC2022US261040

PATIENT
  Sex: Female

DRUGS (7)
  1. XOLAIR [Suspect]
     Active Substance: OMALIZUMAB
     Indication: Urticaria
     Route: 065
  2. TACROLIMUS [Suspect]
     Active Substance: TACROLIMUS
     Indication: Inflammation
     Dosage: UNK
     Route: 065
     Dates: start: 20221103, end: 20221110
  3. TACROLIMUS [Suspect]
     Active Substance: TACROLIMUS
     Indication: Eczema
  4. ALLEGRA [Concomitant]
     Active Substance: FEXOFENADINE HYDROCHLORIDE
     Indication: Urticaria
     Route: 065
  5. ZYRTEC [Concomitant]
     Active Substance: CETIRIZINE HYDROCHLORIDE
     Indication: Urticaria
     Route: 065
  6. DOXEPIN [Concomitant]
     Active Substance: DOXEPIN
     Indication: Urticaria
     Dosage: 25 MG
     Route: 065
  7. PEPCID AC [Concomitant]
     Active Substance: FAMOTIDINE
     Indication: Urticaria
     Route: 065

REACTIONS (10)
  - Condition aggravated [Unknown]
  - Quality of life decreased [Unknown]
  - Discomfort [Unknown]
  - Mycotic allergy [Unknown]
  - Mite allergy [Unknown]
  - Application site irritation [Unknown]
  - Application site rash [Unknown]
  - Application site reaction [Unknown]
  - Application site pruritus [Unknown]
  - Pain [Unknown]
